APPROVED DRUG PRODUCT: CEFTIN
Active Ingredient: CEFUROXIME AXETIL
Strength: EQ 125MG BASE/5ML
Dosage Form/Route: FOR SUSPENSION;ORAL
Application: N050672 | Product #001
Applicant: GLAXOSMITHKLINE
Approved: Jun 30, 1994 | RLD: Yes | RS: No | Type: DISCN